FAERS Safety Report 4450258-8 (Version None)
Quarter: 2004Q3

REPORT INFORMATION
  Report Type: 
  Country: None (occurrence: None)
  Receive Date: 20040914
  Receipt Date: 20040831
  Transmission Date: 20050211
  Serious: Yes (Hospitalization)
  Sender: FDA-Public Use
  Company Number: 2004039218

PATIENT
  Age: 63 Year
  Sex: Female
  Weight: 60 kg

DRUGS (2)
  1. ATORVASTATIN CALCIUM [Suspect]
     Indication: HYPERCHOLESTEROLAEMIA
     Dosage: ORAL
     Route: 048
     Dates: end: 20030901
  2. BROMAZEPAM (BROMAZEPAM) [Concomitant]

REACTIONS (13)
  - ALANINE AMINOTRANSFERASE INCREASED [None]
  - ASPARTATE AMINOTRANSFERASE INCREASED [None]
  - BLOOD CHOLESTEROL INCREASED [None]
  - BLOOD LACTATE DEHYDROGENASE INCREASED [None]
  - HEPATOTOXICITY [None]
  - LIVER DISORDER [None]
  - MUSCLE NECROSIS [None]
  - MYOPATHY [None]
  - MYOSITIS [None]
  - PARESIS [None]
  - REBOUND EFFECT [None]
  - RHABDOMYOLYSIS [None]
  - TRANSAMINASES INCREASED [None]
